FAERS Safety Report 12753547 (Version 1)
Quarter: 2016Q3

REPORT INFORMATION
  Report Type: Not Available
  Country: US (occurrence: US)
  Receive Date: 20160915
  Receipt Date: 20160915
  Transmission Date: 20161109
  Serious: No
  Sender: FDA-Public Use
  Company Number: US-ANIPHARMA-2016-US-006090

PATIENT
  Age: 87 Year
  Sex: Female

DRUGS (2)
  1. OXYCODONE (NON-SPECIFIC) [Suspect]
     Active Substance: OXYCODONE
     Dosage: UNKNOWN
     Route: 065
  2. REGLAN [Suspect]
     Active Substance: METOCLOPRAMIDE HYDROCHLORIDE
     Dosage: UNKNOWN
     Route: 065

REACTIONS (2)
  - Hypersensitivity [Unknown]
  - Restless legs syndrome [Unknown]
